FAERS Safety Report 22030284 (Version 1)
Quarter: 2023Q1

REPORT INFORMATION
  Report Type: Report from Study
  Country: ES (occurrence: ES)
  Receive Date: 20230223
  Receipt Date: 20230223
  Transmission Date: 20230417
  Serious: Yes (Hospitalization)
  Sender: FDA-Public Use
  Company Number: ES-SOCIETAL CDMO GAINESVILLE, LLC-SOC-2023-000004

PATIENT
  Age: 57 Year
  Sex: Female

DRUGS (1)
  1. VERAPAMIL HYDROCHLORIDE [Suspect]
     Active Substance: VERAPAMIL HYDROCHLORIDE
     Indication: Hypertension
     Dosage: 120 MILLIGRAM, BID
     Route: 065

REACTIONS (8)
  - Hypotension [Unknown]
  - Bradycardia [Unknown]
  - Asthenia [Unknown]
  - Erythema [Unknown]
  - Hyperhidrosis [Unknown]
  - Dehydration [Unknown]
  - Food interaction [Recovered/Resolved]
  - Atrioventricular block second degree [Unknown]
